FAERS Safety Report 24960928 (Version 1)
Quarter: 2025Q1

REPORT INFORMATION
  Report Type: Spontaneous
  Country: CA (occurrence: CA)
  Receive Date: 20250212
  Receipt Date: 20250212
  Transmission Date: 20250408
  Serious: Yes (Other)
  Sender: ROCHE
  Company Number: CA-002147023-NVSC2025CA020500

PATIENT
  Age: 43 Year
  Sex: Female

DRUGS (25)
  1. XOLAIR [Suspect]
     Active Substance: OMALIZUMAB
     Indication: Asthma
     Dosage: 375 MG (1 EVERY 5 WEEKS)
     Route: 050
  2. XOLAIR [Suspect]
     Active Substance: OMALIZUMAB
     Dosage: 375 MG (1 EVERY 5 WEEKS)
     Route: 050
  3. XOLAIR [Suspect]
     Active Substance: OMALIZUMAB
     Dosage: 375 MG (1 EVERY 5 WEEKS)
     Route: 050
  4. XOLAIR [Suspect]
     Active Substance: OMALIZUMAB
     Dosage: 375 MG (1 EVERY 5 WEEKS)
     Route: 050
  5. XOLAIR [Suspect]
     Active Substance: OMALIZUMAB
     Dosage: 375 MG (1 EVERY 5 WEEKS)
     Route: 050
  6. XOLAIR [Suspect]
     Active Substance: OMALIZUMAB
     Dosage: 375 MG (1 EVERY 5 WEEKS)
     Route: 058
  7. XOLAIR [Suspect]
     Active Substance: OMALIZUMAB
     Route: 058
  8. XOLAIR [Suspect]
     Active Substance: OMALIZUMAB
     Dosage: 375 MG (1 EVERY 5 WEEKS)
     Route: 058
  9. XOLAIR [Suspect]
     Active Substance: OMALIZUMAB
     Dosage: 375 MG, BIW
     Route: 050
  10. XOLAIR [Suspect]
     Active Substance: OMALIZUMAB
     Dosage: 375 MG (1 EVERY 5 WEEKS)
     Route: 058
  11. XOLAIR [Suspect]
     Active Substance: OMALIZUMAB
     Route: 065
  12. XOLAIR [Suspect]
     Active Substance: OMALIZUMAB
     Route: 065
  13. XOLAIR [Suspect]
     Active Substance: OMALIZUMAB
     Route: 065
  14. XOLAIR [Suspect]
     Active Substance: OMALIZUMAB
     Dosage: 375 MG (1 EVERY 5 WEEKS)
     Route: 050
  15. ADVAIR HFA [Concomitant]
     Active Substance: FLUTICASONE PROPIONATE\SALMETEROL XINAFOATE
     Indication: Product used for unknown indication
     Dosage: 1 DOSAGE FORM, QD
     Route: 065
  16. ALVESCO [Concomitant]
     Active Substance: CICLESONIDE
     Indication: Product used for unknown indication
     Route: 065
  17. PREDNISONE [Concomitant]
     Active Substance: PREDNISONE
     Indication: Product used for unknown indication
     Route: 065
  18. FLUTICASONE FUROATE [Concomitant]
     Active Substance: FLUTICASONE FUROATE
     Indication: Product used for unknown indication
     Route: 065
  19. INDACATEROL MALEATE [Concomitant]
     Active Substance: INDACATEROL MALEATE
     Indication: Product used for unknown indication
     Route: 065
  20. INDACATEROL MALEATE [Concomitant]
     Active Substance: INDACATEROL MALEATE
     Dosage: 2 DOSAGE FORM, QD
     Route: 065
  21. METFORMIN [Concomitant]
     Active Substance: METFORMIN HYDROCHLORIDE
     Indication: Product used for unknown indication
     Route: 065
  22. MIRTAZAPINE [Concomitant]
     Active Substance: MIRTAZAPINE
     Indication: Product used for unknown indication
     Route: 065
  23. MONTELUKAST [Concomitant]
     Active Substance: MONTELUKAST
     Indication: Product used for unknown indication
     Route: 065
  24. PREGABALIN [Concomitant]
     Active Substance: PREGABALIN
     Indication: Product used for unknown indication
     Route: 065
  25. SYNTHROID [Concomitant]
     Active Substance: LEVOTHYROXINE SODIUM
     Indication: Product used for unknown indication
     Route: 065

REACTIONS (31)
  - Anosmia [Recovered/Resolved]
  - Asthenia [Recovered/Resolved]
  - Back pain [Recovered/Resolved]
  - Blood pressure increased [Recovered/Resolved]
  - COVID-19 [Recovered/Resolved]
  - Chest discomfort [Recovered/Resolved]
  - Cough [Recovered/Resolved]
  - Dysphonia [Recovered/Resolved]
  - Dyspnoea [Recovered/Resolved]
  - Ear discomfort [Recovered/Resolved]
  - Fall [Unknown]
  - Foot fracture [Recovered/Resolved]
  - Herpes zoster [Recovered/Resolved]
  - Illness [Recovered/Resolved]
  - Influenza [Recovered/Resolved]
  - Intervertebral disc protrusion [Recovered/Resolved]
  - Ligament rupture [Recovered/Resolved]
  - Lumbar spinal stenosis [Recovered/Resolved]
  - Nasal congestion [Recovered/Resolved]
  - Nasopharyngitis [Recovered/Resolved]
  - Oropharyngeal pain [Recovered/Resolved]
  - Pulmonary congestion [Recovered/Resolved]
  - Sputum discoloured [Recovered/Resolved]
  - Upper limb fracture [Recovered/Resolved]
  - Weight decreased [Recovered/Resolved]
  - Wheezing [Recovered/Resolved]
  - Wrong technique in product usage process [Unknown]
  - Asthma [Recovered/Resolved]
  - Fatigue [Recovered/Resolved]
  - Headache [Recovered/Resolved]
  - Pyrexia [Recovered/Resolved]
